FAERS Safety Report 12637397 (Version 1)
Quarter: 2016Q3

REPORT INFORMATION
  Report Type: Spontaneous
  Country: US (occurrence: US)
  Receive Date: 20160809
  Receipt Date: 20160809
  Transmission Date: 20161109
  Serious: No
  Sender: FDA-Public Use
  Company Number: US-BEH-2016060768

PATIENT
  Sex: Female
  Weight: 96 kg

DRUGS (19)
  1. CELLCEPT [Concomitant]
     Active Substance: MYCOPHENOLATE MOFETIL\MYCOPHENOLATE MOFETIL HYDROCHLORIDE
  2. TIZANIDINE. [Concomitant]
     Active Substance: TIZANIDINE
  3. ACETAMINOPHEN. [Concomitant]
     Active Substance: ACETAMINOPHEN
  4. LIDOCAINE. [Concomitant]
     Active Substance: LIDOCAINE
  5. EPIPEN [Concomitant]
     Active Substance: EPINEPHRINE
  6. CLONIDINE. [Concomitant]
     Active Substance: CLONIDINE
  7. GABAPENTIN. [Concomitant]
     Active Substance: GABAPENTIN
  8. FLONASE [Concomitant]
     Active Substance: FLUTICASONE PROPIONATE
  9. ZYRTEC [Concomitant]
     Active Substance: CETIRIZINE HYDROCHLORIDE
  10. DILAUDID [Concomitant]
     Active Substance: HYDROMORPHONE HYDROCHLORIDE
  11. DIPHENHYDRAMINE. [Concomitant]
     Active Substance: DIPHENHYDRAMINE
  12. HEPARIN [Concomitant]
     Active Substance: HEPARIN SODIUM
  13. NORMAL SALINE [Concomitant]
     Active Substance: SODIUM CHLORIDE
  14. METFORMIN [Concomitant]
     Active Substance: METFORMIN HYDROCHLORIDE
  15. MESTINON [Concomitant]
     Active Substance: PYRIDOSTIGMINE BROMIDE
  16. PRIVIGEN [Suspect]
     Active Substance: HUMAN IMMUNOGLOBULIN G
     Indication: MYASTHENIA GRAVIS
     Dosage: DAILY X5 DAYS EVERY 4 WEEKS
     Route: 042
  17. SODIUM CHLORIDE. [Concomitant]
     Active Substance: SODIUM CHLORIDE
  18. VALSARTAN AND HYDROCHLOROTHIAZIDE [Concomitant]
     Active Substance: HYDROCHLOROTHIAZIDE\VALSARTAN
  19. ATENOLOL. [Concomitant]
     Active Substance: ATENOLOL

REACTIONS (4)
  - Pyrexia [Unknown]
  - Headache [Unknown]
  - Nausea [Unknown]
  - Chest pain [Unknown]
